FAERS Safety Report 24978235 (Version 3)
Quarter: 2025Q2

REPORT INFORMATION
  Report Type: Spontaneous
  Country: CN (occurrence: CN)
  Receive Date: 20250217
  Receipt Date: 20250429
  Transmission Date: 20250717
  Serious: Yes (Hospitalization)
  Sender: NOVARTIS
  Company Number: CN-002147023-NVSC2025CN026145

PATIENT
  Age: 54 Year
  Sex: Male

DRUGS (5)
  1. COSENTYX [Suspect]
     Active Substance: SECUKINUMAB
     Indication: Psoriasis
     Dosage: 300 MG, QW
     Route: 058
     Dates: start: 20220718
  2. COSENTYX [Suspect]
     Active Substance: SECUKINUMAB
     Dosage: 300 MG, BID
     Route: 058
     Dates: start: 20220725
  3. COSENTYX [Suspect]
     Active Substance: SECUKINUMAB
     Dosage: 300 MG, BID
     Route: 058
     Dates: start: 20220801
  4. RIFAMPIN [Suspect]
     Active Substance: RIFAMPIN
     Indication: Antibiotic prophylaxis
     Dosage: 0.45 G, QD
     Route: 048
     Dates: start: 20220718, end: 20220724
  5. ISONIAZID [Suspect]
     Active Substance: ISONIAZID
     Indication: Antibiotic prophylaxis
     Dosage: 0.3 G, QD
     Route: 048
     Dates: start: 20220718, end: 20220724

REACTIONS (8)
  - Acute kidney injury [Recovering/Resolving]
  - Nausea [Recovering/Resolving]
  - Decreased appetite [Recovering/Resolving]
  - Vomiting [Recovering/Resolving]
  - Oedema peripheral [Recovering/Resolving]
  - Oliguria [Recovering/Resolving]
  - Renal tubular necrosis [Recovering/Resolving]
  - Nephropathy [Recovering/Resolving]

NARRATIVE: CASE EVENT DATE: 20220101
